FAERS Safety Report 6727671-9 (Version None)
Quarter: 2010Q2

REPORT INFORMATION
  Report Type: 
  Country: None (occurrence: None)
  Receive Date: 20100514
  Receipt Date: 20100514
  Transmission Date: 20101027
  Serious: No
  Sender: FDA-Public Use
  Company Number: None

PATIENT
  Age: 35 Year
  Sex: Male
  Weight: 102.0593 kg

DRUGS (1)
  1. LAMOTRIGINE [Suspect]
     Indication: EPILEPSY
     Dosage: 200 MG DAILY PO
     Route: 048
     Dates: start: 20091130, end: 20100513

REACTIONS (2)
  - DYSKINESIA [None]
  - PRODUCT SUBSTITUTION ISSUE [None]
